FAERS Safety Report 6701677-8 (Version None)
Quarter: 2010Q2

REPORT INFORMATION
  Report Type: 
  Country: None (occurrence: None)
  Receive Date: 20100429
  Receipt Date: 20100414
  Transmission Date: 20101027
  Serious: Yes (Other)
  Sender: FDA-Public Use
  Company Number: PHHY2010JP15727

PATIENT
  Sex: Female
  Weight: 64 kg

DRUGS (15)
  1. ZOMETA [Suspect]
     Indication: METASTASES TO BONE
     Dosage: 4 MG, EVERY 3 WEEKS
     Route: 042
     Dates: start: 20080808
  2. FEMARA [Suspect]
     Indication: BREAST CANCER
     Dosage: UNK
     Route: 048
     Dates: start: 20100115
  3. BENET [Suspect]
     Indication: METASTASES TO BONE
     Dosage: 2.5 MG, UNK
     Route: 048
     Dates: start: 20050701, end: 20080701
  4. NAVELBINE [Concomitant]
     Indication: BREAST CANCER RECURRENT
     Dosage: 40 MG, UNK
     Route: 041
     Dates: start: 20080418
  5. HERCEPTIN [Concomitant]
     Indication: BREAST CANCER RECURRENT
     Dosage: UNK
     Dates: start: 20050317
  6. HERCEPTIN [Concomitant]
     Dosage: 264 MG, UNK
     Route: 041
     Dates: start: 20080818
  7. HERCEPTIN [Concomitant]
     Dosage: 132 MG, UNK
     Route: 041
  8. ACTOS [Concomitant]
     Dosage: 15 MG, UNK
     Route: 048
  9. AMARYL [Concomitant]
     Dosage: 0.5 MG, UNK
     Route: 048
  10. MELBIN [Concomitant]
     Dosage: 250 MG, UNK
     Route: 048
  11. ARIMIDEX [Concomitant]
     Route: 048
  12. NORVASC [Concomitant]
     Route: 048
  13. TOREMIFENE CITRATE [Concomitant]
     Dosage: UNK
     Dates: start: 20091120
  14. GEMZAR [Concomitant]
     Dosage: UNK
     Dates: start: 20091211
  15. DOCETAXEL [Concomitant]
     Dosage: UNK
     Dates: start: 20090109

REACTIONS (14)
  - ASPARTATE AMINOTRANSFERASE INCREASED [None]
  - BLOOD LACTATE DEHYDROGENASE INCREASED [None]
  - DEBRIDEMENT [None]
  - GAMMA-GLUTAMYLTRANSFERASE INCREASED [None]
  - GINGIVAL DISORDER [None]
  - HAEMOGLOBIN DECREASED [None]
  - LOOSE TOOTH [None]
  - OPEN WOUND [None]
  - OSTEONECROSIS [None]
  - PAIN IN JAW [None]
  - PLATELET COUNT INCREASED [None]
  - SEQUESTRECTOMY [None]
  - THROMBOSIS [None]
  - TOOTH EXTRACTION [None]
